FAERS Safety Report 17241553 (Version 1)
Quarter: 2020Q1

REPORT INFORMATION
  Report Type: Spontaneous
  Country: IT (occurrence: IT)
  Receive Date: 20200107
  Receipt Date: 20200107
  Transmission Date: 20200409
  Serious: Yes (Hospitalization)
  Sender: FDA-Public Use
  Company Number: IT-ASTRAZENECA-2019SF92018

PATIENT
  Age: 80 Year
  Sex: Female

DRUGS (6)
  1. NEXIUM [Interacting]
     Active Substance: ESOMEPRAZOLE MAGNESIUM
     Indication: GASTRITIS PROPHYLAXIS
     Route: 042
     Dates: start: 20190101, end: 20191114
  2. SERTRALINE [Interacting]
     Active Substance: SERTRALINE HYDROCHLORIDE
     Indication: DEPRESSION
     Route: 048
     Dates: start: 20190101, end: 20191114
  3. HALCION [Concomitant]
     Active Substance: TRIAZOLAM
     Route: 048
  4. MIRTAZAPINE. [Interacting]
     Active Substance: MIRTAZAPINE
     Indication: DEPRESSION
     Route: 048
     Dates: start: 20190101, end: 20191114
  5. NEXIUM [Suspect]
     Active Substance: ESOMEPRAZOLE MAGNESIUM
     Indication: GASTRITIS PROPHYLAXIS
     Route: 048
     Dates: start: 20190101, end: 20191114
  6. IRBESARTAN TEVA [Concomitant]
     Active Substance: IRBESARTAN
     Route: 048

REACTIONS (4)
  - Pulse absent [Recovering/Resolving]
  - Torsade de pointes [Recovering/Resolving]
  - Syncope [Recovering/Resolving]
  - Drug interaction [Recovering/Resolving]

NARRATIVE: CASE EVENT DATE: 20191114
